FAERS Safety Report 7662220-2 (Version None)
Quarter: 2011Q3

REPORT INFORMATION
  Report Type: 
  Country: None (occurrence: None)
  Receive Date: 20110805
  Receipt Date: 20101222
  Transmission Date: 20111222
  Serious: No
  Sender: FDA-Public Use
  Company Number: US-ABBOTT-10P-163-0693352-00

PATIENT
  Sex: Male
  Weight: 131.66 kg

DRUGS (2)
  1. NIASPAN [Suspect]
     Indication: LOW DENSITY LIPOPROTEIN INCREASED
     Dosage: 500MG Q AM
     Dates: start: 20101211
  2. NIASPAN [Suspect]
     Indication: HIGH DENSITY LIPOPROTEIN DECREASED

REACTIONS (5)
  - VISUAL IMPAIRMENT [None]
  - HOT FLUSH [None]
  - EYE PAIN [None]
  - PARAESTHESIA [None]
  - ERYTHEMA [None]
